FAERS Safety Report 7651435-5 (Version None)
Quarter: 2011Q3

REPORT INFORMATION
  Report Type: 
  Country: None (occurrence: None)
  Receive Date: 20110802
  Receipt Date: 20110731
  Transmission Date: 20111222
  Serious: Yes (Other)
  Sender: FDA-Public Use
  Company Number: US-PFIZER INC-2011012381

PATIENT
  Sex: Female
  Weight: 112 kg

DRUGS (1)
  1. LYRICA [Suspect]
     Indication: FIBROMYALGIA
     Dosage: UNK
     Route: 048
     Dates: start: 20110114

REACTIONS (2)
  - MOBILITY DECREASED [None]
  - WITHDRAWAL SYNDROME [None]
